FAERS Safety Report 9877009 (Version 1)
Quarter: 2014Q1

REPORT INFORMATION
  Report Type: Spontaneous
  Country: GB (occurrence: GB)
  Receive Date: 20140206
  Receipt Date: 20140206
  Transmission Date: 20141002
  Serious: Yes (Hospitalization, Other)
  Sender: FDA-Public Use
  Company Number: GB-ACCORD-021728

PATIENT
  Age: 70 Year
  Sex: Female
  Weight: 96 kg

DRUGS (15)
  1. SALBUTAMOL [Concomitant]
  2. LISINOPRIL [Concomitant]
  3. PARACETAMOL [Concomitant]
  4. METHOTREXATE [Suspect]
     Indication: RHEUMATOID ARTHRITIS
     Route: 048
     Dates: start: 201307, end: 20140106
  5. PREDNISOLONE [Concomitant]
  6. FOLIC ACID [Concomitant]
  7. OMEPRAZOLE [Concomitant]
  8. BIMATOPROST [Concomitant]
  9. FUROSEMIDE [Concomitant]
  10. QUININE [Concomitant]
  11. VISCOTEARS [Concomitant]
  12. TRAMADOL [Concomitant]
  13. FELODIPINE [Concomitant]
  14. PRAMIPEXOLE/PRAMIPEXOLE DIHYDROCHLORIDE [Concomitant]
  15. CELLUVISC [Concomitant]

REACTIONS (3)
  - Lower respiratory tract infection [Unknown]
  - Interstitial lung disease [Recovering/Resolving]
  - Off label use [Unknown]
